FAERS Safety Report 4716544-9 (Version None)
Quarter: 2005Q3

REPORT INFORMATION
  Report Type: 
  Country: None (occurrence: None)
  Receive Date: 20050714
  Receipt Date: 20050705
  Transmission Date: 20060218
  Serious: Yes (Death, Other)
  Sender: FDA-Public Use
  Company Number: 2005-07-0097

PATIENT
  Age: 45 Year
  Sex: Female
  Weight: 89 kg

DRUGS (5)
  1. TRILAFON [Suspect]
     Indication: PSYCHOTIC DISORDER
     Dosage: 216MG Q 14DAY INTRAMUSCULAR
     Route: 030
  2. DISIPAL [Suspect]
     Indication: PSYCHOTIC DISORDER
     Dosage: 200 MG ORAL
     Route: 048
  3. RISPERDAL [Concomitant]
  4. CLONAZEPAM [Concomitant]
  5. ABILIFY [Concomitant]

REACTIONS (5)
  - CARDIAC FAILURE [None]
  - COR PULMONALE [None]
  - DECREASED APPETITE [None]
  - MYOCARDITIS [None]
  - PULMONARY CONGESTION [None]
